FAERS Safety Report 21952132 (Version 1)
Quarter: 2023Q1

REPORT INFORMATION
  Report Type: Spontaneous
  Country: IE (occurrence: IE)
  Receive Date: 20230203
  Receipt Date: 20230203
  Transmission Date: 20230417
  Serious: Yes (Life-Threatening, Other)
  Sender: FDA-Public Use
  Company Number: IE-NXDC-2023GLE00001

PATIENT
  Age: 4 Year
  Sex: Male

DRUGS (1)
  1. AMINOLEVULINIC ACID HYDROCHLORIDE [Suspect]
     Active Substance: AMINOLEVULINIC ACID HYDROCHLORIDE
     Indication: Ependymoma malignant
     Dosage: 20 MG/KG OF 5-ALA (GLIOLAN) WAS ADMINISTERED ON THE MORNING OF SURGERY
     Route: 048

REACTIONS (8)
  - Thrombocytopenia [Recovered/Resolved]
  - Anaemia [Recovered/Resolved]
  - Subdural haematoma [Recovered/Resolved with Sequelae]
  - Cerebral haemorrhage [Recovered/Resolved with Sequelae]
  - Aspartate aminotransferase increased [Recovered/Resolved]
  - Alanine aminotransferase increased [Recovered/Resolved]
  - Off label use [Recovered/Resolved]
  - Blood bilirubin increased [Recovered/Resolved]
